FAERS Safety Report 19929145 (Version 1)
Quarter: 2021Q4

REPORT INFORMATION
  Report Type: Spontaneous
  Country: IN (occurrence: IN)
  Receive Date: 20211007
  Receipt Date: 20211007
  Transmission Date: 20220303
  Serious: Yes (Other)
  Sender: FDA-Public Use
  Company Number: IN-TORRENT-00002913

PATIENT
  Age: 7 Year
  Sex: Male

DRUGS (1)
  1. CARBAMAZEPINE [Suspect]
     Active Substance: CARBAMAZEPINE
     Indication: Fall
     Dosage: UNKNOWN

REACTIONS (2)
  - Condition aggravated [Unknown]
  - Epilepsy with myoclonic-atonic seizures [Unknown]
